FAERS Safety Report 20611577 (Version 1)
Quarter: 2022Q1

REPORT INFORMATION
  Report Type: Spontaneous
  Country: US (occurrence: US)
  Receive Date: 20220318
  Receipt Date: 20220318
  Transmission Date: 20220423
  Serious: No
  Sender: FDA-Public Use
  Company Number: US-GLAXOSMITHKLINE-US2022AMR046856

PATIENT
  Sex: Female

DRUGS (3)
  1. FLONASE [Suspect]
     Active Substance: FLUTICASONE PROPIONATE
     Indication: Product used for unknown indication
     Dosage: UNK
     Dates: start: 1996
  2. ASMANEX [Suspect]
     Active Substance: MOMETASONE FUROATE
     Indication: Product used for unknown indication
     Dosage: 220 UG, BID 220MCG (60)
     Route: 055
  3. ASMANEX [Suspect]
     Active Substance: MOMETASONE FUROATE
     Dosage: 220 UG, BID 220MCG (30)
     Route: 055

REACTIONS (10)
  - Nasal discomfort [Unknown]
  - Throat irritation [Unknown]
  - Chest pain [Unknown]
  - Dyspnoea [Unknown]
  - Throat tightness [Unknown]
  - Swelling face [Unknown]
  - Peripheral swelling [Unknown]
  - Headache [Unknown]
  - Product taste abnormal [Unknown]
  - Product dose omission issue [Unknown]

NARRATIVE: CASE EVENT DATE: 20220101
